FAERS Safety Report 7170038-2 (Version None)
Quarter: 2010Q4

REPORT INFORMATION
  Report Type: 
  Country: None (occurrence: None)
  Receive Date: 20101214
  Receipt Date: 20101214
  Transmission Date: 20110411
  Serious: Yes (Other)
  Sender: FDA-Public Use
  Company Number: None

PATIENT
  Sex: Female
  Weight: 103.8737 kg

DRUGS (1)
  1. FOSAMAX [Suspect]
     Dosage: 70 MG. ONCE A WEEK ORAL (TOOK IT 3-4 TIMES (3-4 WEEKS) )
     Route: 048
     Dates: start: 20040201

REACTIONS (1)
  - ABDOMINAL PAIN UPPER [None]
